FAERS Safety Report 8127545-5 (Version None)
Quarter: 2012Q1

REPORT INFORMATION
  Report Type: 
  Country: None (occurrence: None)
  Receive Date: 20120210
  Receipt Date: 20120201
  Transmission Date: 20120608
  Serious: Yes (Hospitalization, Other)
  Sender: FDA-Public Use
  Company Number: JP-AMGEN-JPNCT2011067293

PATIENT
  Age: 77 Year
  Sex: Male
  Weight: 47 kg

DRUGS (13)
  1. PANITUMUMAB [Suspect]
     Indication: COLORECTAL CANCER
     Dosage: 324 MG, Q2WK
     Route: 041
     Dates: start: 20110510, end: 20111206
  2. FLUOROURACIL [Concomitant]
     Dosage: 2100 MG, Q2WK
     Route: 041
     Dates: start: 20100420, end: 20110805
  3. FLUOROURACIL [Concomitant]
     Dosage: 2100 MG, Q2WK
     Route: 041
     Dates: start: 20110816, end: 20111014
  4. OXALIPLATIN [Suspect]
     Dosage: 100 MG, Q2WK
     Route: 041
     Dates: start: 20110816, end: 20111014
  5. TS 1 [Suspect]
     Indication: LARGE INTESTINE CARCINOMA
     Dosage: 80 MG, UNK
     Route: 048
     Dates: start: 20111108, end: 20111122
  6. IRINOTECAN HCL [Concomitant]
     Dosage: 100 MG, Q2WK
     Route: 041
     Dates: start: 20111108, end: 20111122
  7. LEVOLEUCOVORIN CALCIUM [Concomitant]
     Dosage: 230 MG, Q2WK
     Route: 041
     Dates: start: 20110816, end: 20111014
  8. OXALIPLATIN [Suspect]
     Indication: LARGE INTESTINE CARCINOMA
     Dosage: 100 MG, Q2WK
     Route: 041
     Dates: start: 20090916, end: 20100317
  9. LEVOLEUCOVORIN CALCIUM [Concomitant]
     Indication: LARGE INTESTINE CARCINOMA
     Dosage: 230 MG, Q2WK
     Route: 041
     Dates: start: 20090916, end: 20100317
  10. LEVOLEUCOVORIN CALCIUM [Concomitant]
     Dosage: 300 MG, Q2WK
     Route: 041
     Dates: start: 20100420, end: 20110805
  11. ERBITUX [Suspect]
     Indication: LARGE INTESTINE CARCINOMA
     Dosage: 400 MG, QWK
     Route: 041
     Dates: start: 20100805, end: 20110502
  12. FLUOROURACIL [Concomitant]
     Indication: LARGE INTESTINE CARCINOMA
     Dosage: 2600 MG, Q2WK
     Route: 041
     Dates: start: 20090916, end: 20100317
  13. IRINOTECAN HCL [Concomitant]
     Indication: LARGE INTESTINE CARCINOMA
     Dosage: 220 MG, Q2WK
     Route: 041
     Dates: start: 20100420, end: 20110805

REACTIONS (7)
  - DIARRHOEA [None]
  - HYPOMAGNESAEMIA [None]
  - STOMATITIS [None]
  - TETANY [None]
  - HYPOALBUMINAEMIA [None]
  - HYPOCALCAEMIA [None]
  - DECREASED APPETITE [None]
